FAERS Safety Report 5630405-2 (Version None)
Quarter: 2008Q1

REPORT INFORMATION
  Report Type: 
  Country: None (occurrence: None)
  Receive Date: 20080219
  Receipt Date: 20080214
  Transmission Date: 20080703
  Serious: Yes (Other)
  Sender: FDA-Public Use
  Company Number: FR-BRISTOL-MYERS SQUIBB COMPANY-14077689

PATIENT
  Age: 8 Year
  Sex: Male
  Weight: 17 kg

DRUGS (3)
  1. FUNGIZONE [Suspect]
  2. SPORANOX [Suspect]
  3. TRIFLUCAN [Suspect]

REACTIONS (2)
  - GROWTH RETARDATION [None]
  - TUBULOINTERSTITIAL NEPHRITIS [None]
